FAERS Safety Report 9021658 (Version 1)
Quarter: 2013Q1

REPORT INFORMATION
  Report Type: Spontaneous
  Country: US (occurrence: US)
  Receive Date: 20130119
  Receipt Date: 20130119
  Transmission Date: 20140127
  Serious: No
  Sender: FDA-Public Use
  Company Number: US-ALLERGAN-1200726US

PATIENT
  Age: 33 Year
  Sex: Female
  Weight: 58.05 kg

DRUGS (32)
  1. BOTOX? [Suspect]
     Indication: MIGRAINE
     Dosage: 220 UNITS, SINGLE
     Route: 030
     Dates: start: 20111221, end: 20111221
  2. BOTOX? [Suspect]
     Dosage: UNK
     Dates: start: 20111012, end: 20111012
  3. BOTOX? [Suspect]
     Dosage: UNK
     Dates: start: 20110720, end: 20110720
  4. BOTOX? [Suspect]
     Dosage: UNK
     Dates: start: 20110427, end: 20110427
  5. BOTOX? [Suspect]
     Dosage: UNK
     Dates: start: 20110202, end: 20110202
  6. BOTOX? [Suspect]
     Dosage: UNK
     Dates: start: 20101124, end: 20101124
  7. BOTOX? [Suspect]
     Dosage: UNK
     Dates: start: 20100915, end: 20100915
  8. BOTOX? [Suspect]
     Dosage: UNK
     Dates: start: 20100707, end: 20100707
  9. BOTOX? [Suspect]
     Dosage: UNK
     Dates: start: 20100221, end: 20100221
  10. BOTOX? [Suspect]
     Dosage: UNK
     Dates: start: 20091209, end: 20091209
  11. BOTOX? [Suspect]
     Dosage: UNK
     Dates: start: 20090930, end: 20090930
  12. BOTOX? [Suspect]
     Dosage: UNK
     Dates: start: 20090722, end: 20090722
  13. BOTOX? [Suspect]
     Dosage: UNK
     Dates: start: 20090513, end: 20090513
  14. BOTOX? [Suspect]
     Dosage: UNK
     Dates: start: 20090304, end: 20090304
  15. BOTOX? [Suspect]
     Dosage: UNK
     Dates: start: 20081226, end: 20081226
  16. BOTOX? [Suspect]
     Dosage: UNK
     Dates: start: 20080924, end: 20080924
  17. BOTOX? [Suspect]
     Dosage: UNK
     Dates: start: 20080709, end: 20080709
  18. BOTOX? [Suspect]
     Dosage: UNK
     Dates: start: 20080430, end: 20080430
  19. BOTOX? [Suspect]
     Dosage: UNK
     Dates: start: 20080227, end: 20080227
  20. BOTOX? [Suspect]
     Dosage: UNK
     Dates: start: 20071205, end: 20071205
  21. BOTOX? [Suspect]
     Dosage: UNK
     Dates: start: 20070912, end: 20070912
  22. BOTOX? [Suspect]
     Dosage: UNK
     Dates: start: 20070619, end: 20070619
  23. BOTOX? [Suspect]
     Dosage: UNK
     Dates: start: 20070404, end: 20070404
  24. BOTOX? [Suspect]
     Dosage: UNK
     Dates: start: 20070119, end: 20070119
  25. BOTOX? [Suspect]
     Dosage: UNK
     Dates: start: 20061115, end: 20061115
  26. BOTOX? [Suspect]
     Dosage: UNK
     Dates: start: 20060823, end: 20060823
  27. BOTOX? [Suspect]
     Dosage: UNK
     Dates: start: 20060531, end: 20060531
  28. AMITIZA [Concomitant]
     Indication: CONSTIPATION
     Dosage: 30 MG, UNK
     Dates: start: 201109
  29. DEXILANT [Concomitant]
     Dosage: 60 MG, QD
  30. ABILIFY [Concomitant]
     Dosage: 2 MG, QD
     Dates: start: 201112
  31. SPIRONOLACTONE [Concomitant]
     Dosage: 100 MG, QD
  32. ZOMIG [Concomitant]
     Indication: MIGRAINE
     Dosage: 5 MG, QPM
     Route: 045
     Dates: start: 2005

REACTIONS (10)
  - Posture abnormal [Not Recovered/Not Resolved]
  - Night sweats [Unknown]
  - Pain [Unknown]
  - Musculoskeletal stiffness [Not Recovered/Not Resolved]
  - Sensation of heaviness [Not Recovered/Not Resolved]
  - Muscle spasms [Unknown]
  - Diplopia [Not Recovered/Not Resolved]
  - Eyelid ptosis [Not Recovered/Not Resolved]
  - Muscular weakness [Not Recovered/Not Resolved]
  - Paraesthesia [Not Recovered/Not Resolved]
